FAERS Safety Report 7608132-1 (Version None)
Quarter: 2011Q3

REPORT INFORMATION
  Report Type: 
  Country: None (occurrence: None)
  Receive Date: 20110714
  Receipt Date: 20110707
  Transmission Date: 20111222
  Serious: Yes (Life-Threatening, Hospitalization, Disabling, Other)
  Sender: FDA-Public Use
  Company Number: AR-ELI_LILLY_AND_COMPANY-AR201107002777

PATIENT
  Sex: Male

DRUGS (9)
  1. PRASUGREL HYDROCHLORIDE [Suspect]
     Indication: INTERMITTENT CLAUDICATION
     Dosage: UNK UNK, UNKNOWN
     Route: 048
     Dates: start: 20110518
  2. SPIRONOLACTONE [Concomitant]
     Dosage: UNK, UNKNOWN
     Route: 065
  3. LEVOTHYROXINE SODIUM [Concomitant]
     Dosage: UNK, UNKNOWN
     Route: 065
  4. CARVEDILOL [Concomitant]
     Dosage: UNK, UNKNOWN
     Route: 065
  5. INSULIN NPH                        /01223208/ [Concomitant]
     Dosage: UNK UNK, UNKNOWN
     Route: 065
     Dates: start: 20051215
  6. FUROSEMIDE [Concomitant]
     Dosage: UNK, UNKNOWN
     Route: 065
  7. ENALAPRIL MALEATE [Concomitant]
     Dosage: UNK, UNKNOWN
     Route: 065
  8. ROSUVASTATIN [Concomitant]
     Dosage: UNK, UNKNOWN
     Route: 065
  9. DIGOXIN [Concomitant]
     Dosage: UNK, UNKNOWN
     Route: 065

REACTIONS (2)
  - SEPTIC SHOCK [None]
  - RECTAL HAEMORRHAGE [None]
